FAERS Safety Report 25532042 (Version 1)
Quarter: 2025Q3

REPORT INFORMATION
  Report Type: Spontaneous
  Country: BR (occurrence: BR)
  Receive Date: 20250709
  Receipt Date: 20250709
  Transmission Date: 20251020
  Serious: Yes (Death)
  Sender: ASTELLAS
  Company Number: BR-SEATTLE GENETICS-2023SGN01257

PATIENT
  Age: 65 Year
  Sex: Male

DRUGS (2)
  1. PADCEV [Suspect]
     Active Substance: ENFORTUMAB VEDOTIN-EJFV
     Indication: Transitional cell carcinoma
     Route: 065
     Dates: start: 20220919
  2. PADCEV [Suspect]
     Active Substance: ENFORTUMAB VEDOTIN-EJFV
     Route: 065

REACTIONS (2)
  - Disease progression [Fatal]
  - Drug resistance [Fatal]

NARRATIVE: CASE EVENT DATE: 20230101
